FAERS Safety Report 10194299 (Version 2)
Quarter: 2014Q2

REPORT INFORMATION
  Report Type: Spontaneous
  Country: US (occurrence: US)
  Receive Date: 20140526
  Receipt Date: 20140526
  Transmission Date: 20141212
  Serious: No
  Sender: FDA-Public Use
  Company Number: US-ASTRAZENECA-2014SE23743

PATIENT
  Sex: Female

DRUGS (2)
  1. SYMBICORT PMDI [Suspect]
     Dosage: 160MCG/4.5MCG 2 PUFFS, BID
     Route: 055
  2. SYMBICORT PMDI [Suspect]
     Dosage: 160MCG/4.5MCG 1 PUFF, BID
     Route: 055

REACTIONS (4)
  - Tooth discolouration [Unknown]
  - Intentional product misuse [Unknown]
  - Incorrect product storage [Unknown]
  - Circumstance or information capable of leading to medication error [Unknown]
